FAERS Safety Report 7423326-6 (Version None)
Quarter: 2011Q2

REPORT INFORMATION
  Report Type: 
  Country: None (occurrence: None)
  Receive Date: 20110413
  Receipt Date: 20110413
  Transmission Date: 20111010
  Serious: Yes (Hospitalization)
  Sender: FDA-Public Use
  Company Number: None

PATIENT
  Age: 64 Year
  Sex: Male
  Weight: 87.3 kg

DRUGS (1)
  1. FENTANYL [Suspect]
     Dosage: 50 MCG OTHER OTHER
     Route: 050
     Dates: start: 20101210, end: 20101215

REACTIONS (2)
  - DELIRIUM [None]
  - MENTAL STATUS CHANGES [None]
